FAERS Safety Report 4667265-2 (Version None)
Quarter: 2005Q2

REPORT INFORMATION
  Report Type: 
  Country: None (occurrence: None)
  Receive Date: 20050421
  Receipt Date: 20050211
  Transmission Date: 20051028
  Serious: No
  Sender: FDA-Public Use
  Company Number: 2005029310

PATIENT
  Age: 76 Year
  Sex: Male
  Weight: 90.2658 kg

DRUGS (9)
  1. INSPRA [Suspect]
     Indication: HYPERTENSION
     Dosage: 25 MG (25 MG, ONCE DAILY), ORAL
     Route: 048
     Dates: start: 20050208
  2. EZETIMIBE/SIMVASTATIN (EZETIMIBE, SIMVASTATIN) [Concomitant]
  3. SPIRONOLACTONE [Concomitant]
  4. METOPROLOL TARTRATE [Concomitant]
  5. FINASTERIDE [Concomitant]
  6. CARBAMAZEPINE [Concomitant]
  7. COSOPT [Concomitant]
  8. WARFARIN SODIUM [Concomitant]
  9. HYDROXYZINE HCL [Concomitant]

REACTIONS (2)
  - BLOOD PRESSURE INCREASED [None]
  - HEADACHE [None]
